FAERS Safety Report 10516464 (Version 1)
Quarter: 2014Q4

REPORT INFORMATION
  Report Type: Spontaneous
  Country: US (occurrence: US)
  Receive Date: 20141014
  Receipt Date: 20141014
  Transmission Date: 20150528
  Serious: Yes (Hospitalization)
  Sender: FDA-Public Use
  Company Number: US-PFIZER INC-2014278261

PATIENT
  Age: 76 Year
  Sex: Female
  Weight: 47 kg

DRUGS (2)
  1. ENOXAPARIN SODIUM. [Concomitant]
     Active Substance: ENOXAPARIN SODIUM
     Dosage: 60 MG, DAILY
     Route: 058
  2. SUTENT [Suspect]
     Active Substance: SUNITINIB MALATE
     Indication: RENAL CANCER
     Dosage: 50 MG DAILY (4 WEEKS ON 2 WEEKS OFF)
     Dates: start: 201405, end: 20140930

REACTIONS (4)
  - Pulmonary thrombosis [Unknown]
  - Disease progression [Unknown]
  - Renal cancer [Unknown]
  - Fatigue [Unknown]
